FAERS Safety Report 20313840 (Version 1)
Quarter: 2022Q1

REPORT INFORMATION
  Report Type: Spontaneous
  Country: US (occurrence: US)
  Receive Date: 20220109
  Receipt Date: 20220109
  Transmission Date: 20220423
  Serious: No
  Sender: FDA-Public Use
  Company Number: US-SA-SAC20211231001302

PATIENT
  Age: 62 Year
  Sex: Female

DRUGS (5)
  1. DUPIXENT [Suspect]
     Active Substance: DUPILUMAB
     Indication: Dermatitis atopic
     Dosage: 300 MG, QOW
     Route: 058
     Dates: start: 20210524
  2. ALLEGRA ALLERGY [Concomitant]
     Active Substance: FEXOFENADINE HYDROCHLORIDE
  3. BIOTIN [Concomitant]
     Active Substance: BIOTIN
  4. TYLENOL [Concomitant]
     Active Substance: ACETAMINOPHEN
  5. CELECOXIB [Concomitant]
     Active Substance: CELECOXIB

REACTIONS (3)
  - Joint injury [Unknown]
  - Road traffic accident [Unknown]
  - Knee operation [Unknown]

NARRATIVE: CASE EVENT DATE: 20211226
